FAERS Safety Report 8514403-7 (Version None)
Quarter: 2012Q3

REPORT INFORMATION
  Report Type: 
  Country: None (occurrence: None)
  Receive Date: 20120717
  Receipt Date: 20120709
  Transmission Date: 20120928
  Serious: Yes (Hospitalization)
  Sender: FDA-Public Use
  Company Number: US-B.I. PHARMACEUTICALS,INC./RIDGEFIELD-2012-BP-15334BP

PATIENT
  Age: 32 Year
  Sex: Female

DRUGS (5)
  1. LEVEMIR [Concomitant]
  2. VICTOZA [Concomitant]
  3. CHEMOTHERAPY [Concomitant]
  4. TRADJENTA [Suspect]
     Indication: TYPE 2 DIABETES MELLITUS
  5. METFORMIN HYDROCHLORIDE [Concomitant]

REACTIONS (1)
  - ABDOMINAL PAIN [None]
